FAERS Safety Report 7090714-X (Version None)
Quarter: 2010Q4

REPORT INFORMATION
  Report Type: 
  Country: None (occurrence: None)
  Receive Date: 20101012
  Receipt Date: 20100708
  Transmission Date: 20110411
  Serious: No
  Sender: FDA-Public Use
  Company Number: US-001207

PATIENT
  Sex: Female
  Weight: 139.3 kg

DRUGS (4)
  1. KUVAN [Suspect]
     Indication: PHENYLKETONURIA
     Dosage: 1400 MG QD ORAL
     Route: 048
     Dates: start: 20100616
  2. ZYRTEC [Concomitant]
  3. PREVACID [Concomitant]
  4. IBUPROFEN [Concomitant]

REACTIONS (1)
  - ABNORMAL DREAMS [None]
